FAERS Safety Report 5837855-X (Version None)
Quarter: 2008Q3

REPORT INFORMATION
  Report Type: 
  Country: None (occurrence: None)
  Receive Date: 20080808
  Receipt Date: 20080211
  Transmission Date: 20090109
  Serious: No
  Sender: FDA-Public Use
  Company Number: A0708757A

PATIENT
  Age: 63 Year
  Sex: Male

DRUGS (3)
  1. PAXIL CR [Suspect]
     Dosage: 37.5MG PER DAY
     Route: 048
  2. INSULIN [Concomitant]
  3. AMOXIL [Concomitant]

REACTIONS (1)
  - LYMPHADENOPATHY [None]
